FAERS Safety Report 13191098 (Version 1)
Quarter: 2017Q1

REPORT INFORMATION
  Report Type: Report from Study
  Country: DE (occurrence: DE)
  Receive Date: 20170207
  Receipt Date: 20170207
  Transmission Date: 20170428
  Serious: Yes (Hospitalization)
  Sender: FDA-Public Use
  Company Number: DE-ROCHE-1887402

PATIENT
  Age: 13 Year
  Sex: Female
  Weight: 79 kg

DRUGS (5)
  1. TOCILIZUMAB [Suspect]
     Active Substance: TOCILIZUMAB
     Indication: POLYARTHRITIS
     Route: 042
     Dates: start: 20150806
  2. FOLIC ACID. [Concomitant]
     Active Substance: FOLIC ACID
     Indication: PROPHYLAXIS
     Route: 048
     Dates: start: 20100728
  3. ONDANSETRON [Concomitant]
     Active Substance: ONDANSETRON
     Indication: PROPHYLAXIS
     Route: 048
  4. METHOTREXATE. [Concomitant]
     Active Substance: METHOTREXATE
     Indication: POLYARTHRITIS
     Route: 048
     Dates: start: 20100728
  5. ETORICOXIB [Concomitant]
     Active Substance: ETORICOXIB
     Indication: POLYARTHRITIS
     Route: 048
     Dates: start: 20151101

REACTIONS (1)
  - Synovitis [Recovered/Resolved]

NARRATIVE: CASE EVENT DATE: 20151101
